FAERS Safety Report 6674700-7 (Version None)
Quarter: 2010Q2

REPORT INFORMATION
  Report Type: 
  Country: None (occurrence: None)
  Receive Date: 20100409
  Receipt Date: 20100331
  Transmission Date: 20101027
  Serious: Yes (Hospitalization)
  Sender: FDA-Public Use
  Company Number: JP-JNJFOC-20100401362

PATIENT
  Age: 71 Year
  Sex: Female
  Weight: 42 kg

DRUGS (5)
  1. REMICADE [Suspect]
     Indication: RHEUMATOID ARTHRITIS
     Dosage: 4 TOTAL INFUSIONS
     Route: 042
  2. REMICADE [Suspect]
     Dosage: 6 TOTAL INFUSIONS, 4 INFUSIONS ON UNSPECIFIED DATES
     Route: 042
  3. METHOTREXATE [Suspect]
     Indication: RHEUMATOID ARTHRITIS
  4. FOLIC ACID [Concomitant]
     Indication: PROPHYLAXIS
  5. FERROMIA [Concomitant]
     Indication: ANAEMIA

REACTIONS (1)
  - HERPES ZOSTER [None]
